FAERS Safety Report 10344676 (Version 2)
Quarter: 2014Q3

REPORT INFORMATION
  Report Type: Spontaneous
  Country: IN (occurrence: IN)
  Receive Date: 20140728
  Receipt Date: 20140728
  Transmission Date: 20150326
  Serious: Yes (Life-Threatening, Hospitalization, Other)
  Sender: FDA-Public Use
  Company Number: IN-RANBAXY-2014RR-83698

PATIENT
  Sex: Male

DRUGS (1)
  1. AMLODIPINE [Suspect]
     Active Substance: AMLODIPINE BESYLATE
     Indication: PRODUCT USED FOR UNKNOWN INDICATION
     Dosage: 100 TABLETS (5 MG EACH, TOTAL DOSE 500 MG)
     Route: 065

REACTIONS (3)
  - Shock [Recovered/Resolved]
  - Lactic acidosis [Recovered/Resolved]
  - Overdose [Recovered/Resolved]
